APPROVED DRUG PRODUCT: WESTCORT
Active Ingredient: HYDROCORTISONE VALERATE
Strength: 0.2% **Federal Register determination that product was not discontinued or withdrawn for safety or effectiveness reasons**
Dosage Form/Route: OINTMENT;TOPICAL
Application: N018726 | Product #001
Applicant: SUN PHARMACEUTICAL INDUSTRIES INC
Approved: Aug 8, 1983 | RLD: Yes | RS: No | Type: DISCN